FAERS Safety Report 8612693-3 (Version None)
Quarter: 2012Q3

REPORT INFORMATION
  Report Type: 
  Country: None (occurrence: None)
  Receive Date: 20120822
  Receipt Date: 20110930
  Transmission Date: 20120928
  Serious: No
  Sender: FDA-Public Use
  Company Number: US-ASTRAZENECA-2011SE58998

PATIENT

DRUGS (4)
  1. NEXIUM [Suspect]
     Route: 048
  2. NEXIUM [Suspect]
     Dosage: TWO TIMES A DAY
     Route: 048
  3. SYMBICORT [Suspect]
     Dosage: 160/4.5 MCG
     Route: 055
  4. RHINOCORT [Suspect]
     Route: 045

REACTIONS (1)
  - GASTRIC DISORDER [None]
